FAERS Safety Report 16243975 (Version 1)
Quarter: 2019Q2

REPORT INFORMATION
  Report Type: Spontaneous
  Country: US (occurrence: US)
  Receive Date: 20190426
  Receipt Date: 20190426
  Transmission Date: 20190711
  Serious: No
  Sender: FDA-Public Use
  Company Number: US-TEVA-2019-US-1040440

PATIENT
  Sex: Female

DRUGS (2)
  1. CLONAZEPAM ACTAVIS [Suspect]
     Active Substance: CLONAZEPAM
  2. CLONAZEPAM ACTAVIS [Suspect]
     Active Substance: CLONAZEPAM

REACTIONS (5)
  - Hyperchlorhydria [Unknown]
  - Panic disorder [Unknown]
  - Anxiety [Unknown]
  - Drug ineffective [Unknown]
  - Headache [Unknown]
